FAERS Safety Report 7573247-3 (Version None)
Quarter: 2011Q2

REPORT INFORMATION
  Report Type: 
  Country: None (occurrence: None)
  Receive Date: 20110627
  Receipt Date: 20110613
  Transmission Date: 20111010
  Serious: Yes (Other)
  Sender: FDA-Public Use
  Company Number: PHHY2010CA83976

PATIENT
  Sex: Female

DRUGS (8)
  1. METOPROLOL TARTRATE [Concomitant]
     Dosage: 25 MG, QID
  2. HYDROXYCHLOROQUINE SULFATE [Concomitant]
     Dosage: 200 MG, QD
  3. PRILOSEC [Concomitant]
     Dosage: 20 MG, QD
  4. HISTAMINE [Concomitant]
  5. ZOLEDRONIC ACID [Suspect]
     Indication: OSTEOPOROSIS POSTMENOPAUSAL
     Dosage: 5 MG, UNK
     Route: 042
     Dates: start: 20101214
  6. ACETAMINOPHEN [Concomitant]
  7. ATIVAN [Concomitant]
  8. SALAGEN [Concomitant]
     Dosage: 5 MG, QD

REACTIONS (18)
  - SWELLING FACE [None]
  - FATIGUE [None]
  - BACK PAIN [None]
  - PAIN [None]
  - BONE PAIN [None]
  - EAR PAIN [None]
  - MYALGIA [None]
  - URTICARIA [None]
  - PAIN IN EXTREMITY [None]
  - HYPERSENSITIVITY [None]
  - HEADACHE [None]
  - LIP SWELLING [None]
  - RASH [None]
  - MUSCULOSKELETAL PAIN [None]
  - ARTHRALGIA [None]
  - ACTIVITIES OF DAILY LIVING IMPAIRED [None]
  - ANGIOEDEMA [None]
  - SENSATION OF PRESSURE [None]
